FAERS Safety Report 4456286-0 (Version None)
Quarter: 2004Q3

REPORT INFORMATION
  Report Type: 
  Country: None (occurrence: None)
  Receive Date: 20040922
  Receipt Date: 20040811
  Transmission Date: 20050211
  Serious: Yes (Life-Threatening)
  Sender: FDA-Public Use
  Company Number: DE-MERCK-0408DEU00080

PATIENT
  Age: 12 Year
  Sex: Male
  Weight: 35 kg

DRUGS (2)
  1. SINGULAIR [Suspect]
     Route: 048
     Dates: start: 20010101, end: 20010101
  2. SINGULAIR [Suspect]
     Route: 048
     Dates: start: 20040913

REACTIONS (1)
  - BRADYARRHYTHMIA [None]
